FAERS Safety Report 15406610 (Version 1)
Quarter: 2018Q3

REPORT INFORMATION
  Report Type: Spontaneous
  Country: US (occurrence: US)
  Receive Date: 20180919
  Receipt Date: 20180919
  Transmission Date: 20181010
  Serious: Yes (Disabling)
  Sender: FDA-Public Use
  Company Number: None

PATIENT
  Age: 72 Year
  Sex: Male
  Weight: 93.44 kg

DRUGS (10)
  1. HYDROCORTISONE. [Concomitant]
     Active Substance: HYDROCORTISONE
  2. FLUTICASONE (FLONASE) [Concomitant]
  3. DIPHENHYDRAMINE HCL [Concomitant]
     Active Substance: DIPHENHYDRAMINE HYDROCHLORIDE
  4. PHENYLEPHRINE HCL/ACETAMINOPHN [Concomitant]
  5. AMLODIPINE [Concomitant]
     Active Substance: AMLODIPINE BESYLATE
  6. ATORVASTIN [Concomitant]
     Active Substance: ATORVASTATIN
  7. METFORMIN (GLUCOPHAGE) [Concomitant]
  8. ASPIRIN 81 [Concomitant]
     Active Substance: ASPIRIN
  9. CHANTIX [Suspect]
     Active Substance: VARENICLINE TARTRATE
     Indication: SMOKING CESSATION THERAPY
     Dosage: ?          QUANTITY:28 DF DOSAGE FORM;?
     Route: 048
     Dates: start: 20160916, end: 20161016
  10. TRADJENTA [Concomitant]
     Active Substance: LINAGLIPTIN

REACTIONS (7)
  - Peripheral swelling [None]
  - Gait disturbance [None]
  - Pain in extremity [None]
  - Skin lesion [None]
  - Arthralgia [None]
  - Burning sensation [None]
  - Peripheral vascular disorder [None]

NARRATIVE: CASE EVENT DATE: 20160925
